FAERS Safety Report 4812001-X (Version None)
Quarter: 2005Q4

REPORT INFORMATION
  Report Type: 
  Country: None (occurrence: None)
  Receive Date: 20051027
  Receipt Date: 20051027
  Transmission Date: 20060501
  Serious: Yes (Hospitalization, Disabling, Other)
  Sender: FDA-Public Use
  Company Number: None

PATIENT
  Sex: Female
  Weight: 72.5755 kg

DRUGS (4)
  1. MEDROL [Suspect]
     Indication: ASTHMA
     Dates: start: 20001001, end: 20040430
  2. MEDROL [Suspect]
     Indication: BRONCHITIS
     Dates: start: 20001001, end: 20040430
  3. STEROID INHALERS [Suspect]
     Indication: ASTHMA
     Dates: start: 20001001, end: 20040430
  4. ADVAIR DISKUS 100/50 [Suspect]
     Indication: ASTHMA
     Dates: start: 20001001, end: 20040430

REACTIONS (1)
  - OSTEONECROSIS [None]
